FAERS Safety Report 5171664-2 (Version None)
Quarter: 2006Q4

REPORT INFORMATION
  Report Type: 
  Country: None (occurrence: None)
  Receive Date: 20061205
  Receipt Date: 20061121
  Transmission Date: 20070319
  Serious: Yes (Hospitalization)
  Sender: FDA-Public Use
  Company Number: 2006144438

PATIENT
  Sex: 0

DRUGS (1)
  1. LYRICA [Suspect]

REACTIONS (1)
  - DRUG SCREEN POSITIVE [None]
